FAERS Safety Report 7079431-X (Version None)
Quarter: 2010Q4

REPORT INFORMATION
  Report Type: 
  Country: None (occurrence: None)
  Receive Date: 20101102
  Receipt Date: 20101020
  Transmission Date: 20110411
  Serious: Yes (Hospitalization, Other)
  Sender: FDA-Public Use
  Company Number: US-ELI_LILLY_AND_COMPANY-US201008000582

PATIENT
  Age: 41 Year
  Sex: Female

DRUGS (23)
  1. FORTEO [Suspect]
     Indication: OSTEOPOROSIS
     Dosage: 20 UG, DAILY (1/D)
  2. LEVOTHYROXINE [Concomitant]
  3. IRON [Concomitant]
  4. VENLAFAXINE [Concomitant]
  5. CYCLOBENZAPRINE [Concomitant]
  6. LASIX [Concomitant]
  7. COMPAZINE [Concomitant]
  8. SPIRONOLACTONE [Concomitant]
  9. AVANDIA [Concomitant]
  10. POTASSIUM CHLORIDE [Concomitant]
  11. FOLIC ACID [Concomitant]
  12. GABAPENTIN [Concomitant]
  13. COLACE [Concomitant]
  14. BUSPAR [Concomitant]
  15. MAGNESIUM [Concomitant]
  16. COGENTIN [Concomitant]
  17. AMILORIDE HYDROCHLORIDE [Concomitant]
  18. ABILIFY [Concomitant]
  19. PREVACID [Concomitant]
  20. FENTANYL [Concomitant]
  21. DILAUDID [Concomitant]
     Dosage: 2 MG, AS NEEDED
  22. REGLAN [Concomitant]
  23. IBUPROFEN [Concomitant]

REACTIONS (7)
  - ELECTROLYTE IMBALANCE [None]
  - ERYTHEMA [None]
  - INFECTION [None]
  - MUSCLE SPASMS [None]
  - OEDEMA PERIPHERAL [None]
  - PATHOLOGICAL FRACTURE [None]
  - VEIN DISORDER [None]
